FAERS Safety Report 9758758 (Version 1)
Quarter: 2013Q4

REPORT INFORMATION
  Report Type: Spontaneous
  Country: US (occurrence: None)
  Receive Date: 20131216
  Receipt Date: 20131216
  Transmission Date: 20140711
  Serious: Yes (Other)
  Sender: FDA-Public Use
  Company Number: 062380

PATIENT
  Sex: Male

DRUGS (1)
  1. CIMZIA [Suspect]
     Dosage: (UNKNOWN DOSE)

REACTIONS (3)
  - Hip surgery [None]
  - Breakthrough pain [None]
  - C-reactive protein increased [None]
